FAERS Safety Report 7568843-3 (Version None)
Quarter: 2011Q2

REPORT INFORMATION
  Report Type: 
  Country: None (occurrence: None)
  Receive Date: 20110623
  Receipt Date: 20110608
  Transmission Date: 20111010
  Serious: Yes (Hospitalization)
  Sender: FDA-Public Use
  Company Number: JP-GENENTECH-318037

PATIENT
  Sex: Male
  Weight: 42 kg

DRUGS (10)
  1. OMALIZUMAB [Suspect]
     Dosage: 375 MG, Q2W
     Route: 058
  2. FLUTICASONE PROPIONATE [Concomitant]
     Indication: PRODUCT USED FOR UNKNOWN INDICATION
  3. SINGULAIR [Concomitant]
     Indication: PRODUCT USED FOR UNKNOWN INDICATION
  4. HOKUNALIN [Concomitant]
     Indication: PRODUCT USED FOR UNKNOWN INDICATION
  5. OMALIZUMAB [Suspect]
     Dosage: 375 MG, UNK
     Route: 058
     Dates: start: 20110425
  6. OMALIZUMAB [Suspect]
     Indication: ASTHMA
     Dosage: 375 MG, Q2W
     Route: 058
     Dates: start: 20110228
  7. OMALIZUMAB [Suspect]
     Dosage: 375 MG, UNK
     Dates: start: 20110523
  8. OMALIZUMAB [Suspect]
     Dosage: 375 MG, Q2W
     Route: 058
  9. OMALIZUMAB [Suspect]
     Dosage: 375 MG, Q2W
     Route: 058
     Dates: start: 20110411
  10. CONCOMITANT DRUG [Concomitant]
     Indication: PRODUCT USED FOR UNKNOWN INDICATION

REACTIONS (2)
  - VIRAL UPPER RESPIRATORY TRACT INFECTION [None]
  - ASTHMA [None]
